FAERS Safety Report 7103284-4 (Version None)
Quarter: 2010Q4

REPORT INFORMATION
  Report Type: 
  Country: None (occurrence: None)
  Receive Date: 20101115
  Receipt Date: 20101108
  Transmission Date: 20110411
  Serious: Yes (Hospitalization)
  Sender: FDA-Public Use
  Company Number: JP-BRISTOL-MYERS SQUIBB COMPANY-15248586

PATIENT
  Age: 60 Year
  Sex: Male
  Weight: 50 kg

DRUGS (3)
  1. CETUXIMAB [Suspect]
     Indication: GASTROOESOPHAGEAL CANCER
     Dosage: 5MG/ML REC INF: 06AUG2010
     Route: 042
     Dates: start: 20100716
  2. BRIPLATIN INJ [Suspect]
     Indication: GASTROOESOPHAGEAL CANCER
     Dosage: RECENT INF:6AUG10 60MG/M2 ON DAY 1 OF CYCLE
     Route: 042
     Dates: start: 20100716
  3. XELODA [Suspect]
     Indication: GASTROOESOPHAGEAL CANCER
     Dosage: TABS. THE FIRST DOSE OF CAPECITABINE IN THE CURRENT CYCLE WAS ADMINISTERED ON 6AUG2010 ON DAY 1-15
     Route: 048
     Dates: start: 20100716, end: 20100814

REACTIONS (1)
  - DECREASED APPETITE [None]
